FAERS Safety Report 12607319 (Version 1)
Quarter: 2016Q3

REPORT INFORMATION
  Report Type: Spontaneous
  Country: US (occurrence: US)
  Receive Date: 20160729
  Receipt Date: 20160729
  Transmission Date: 20161109
  Serious: Yes (Other)
  Sender: FDA-Public Use
  Company Number: US-PFIZER INC-2016357006

PATIENT
  Age: 33 Year
  Sex: Female

DRUGS (6)
  1. LISINOPRIL. [Concomitant]
     Active Substance: LISINOPRIL
     Dosage: 10 MG, DAILY, (FOR 100 DAYS)
     Route: 048
  2. RAPAMUNE [Suspect]
     Active Substance: SIROLIMUS
     Indication: PANCREAS TRANSPLANT
  3. MICROGESTIN FE 1.5 [Concomitant]
     Dosage: DAILY ,(MICROGESTIN FE 1.5/30 (28) 1.5MG-30MCG (21)/75 MG (7) TABLET) (TK 1 T )
     Route: 048
  4. TACROLIMUS. [Concomitant]
     Active Substance: TACROLIMUS
     Dosage: 3 MG, DAILY
  5. VITAMIN D2 [Concomitant]
     Active Substance: ERGOCALCIFEROL
     Dosage: 50000 IU, WEEKLY
     Route: 048
  6. RAPAMUNE [Suspect]
     Active Substance: SIROLIMUS
     Indication: RENAL TRANSPLANT
     Dosage: 3 MG, 2X/DAY
     Route: 048

REACTIONS (5)
  - Product use issue [Unknown]
  - Cervix carcinoma stage I [Unknown]
  - Urinary tract infection [Unknown]
  - Anaemia [Unknown]
  - Alanine aminotransferase increased [Unknown]

NARRATIVE: CASE EVENT DATE: 20160402
